FAERS Safety Report 14127093 (Version 1)
Quarter: 2017Q4

REPORT INFORMATION
  Report Type: Spontaneous
  Country: US (occurrence: US)
  Receive Date: 20171026
  Receipt Date: 20171026
  Transmission Date: 20180321
  Serious: No
  Sender: FDA-Public Use
  Company Number: US-ENDO PHARMACEUTICALS INC-2017-002631

PATIENT
  Age: 84 Year
  Sex: Female

DRUGS (2)
  1. NATEGLINIDE. [Suspect]
     Active Substance: NATEGLINIDE
     Indication: DIABETES MELLITUS
     Dosage: 60 MG, TID
     Route: 048
  2. LOSARTAN. [Suspect]
     Active Substance: LOSARTAN
     Indication: DIABETES MELLITUS
     Dosage: 25 MG, OD
     Route: 065

REACTIONS (2)
  - Alopecia [Not Recovered/Not Resolved]
  - Blood glucose increased [Unknown]
